FAERS Safety Report 8660891 (Version 2)
Quarter: 2013Q1

REPORT INFORMATION
  Report Type: Spontaneous
  Country: US (occurrence: US)
  Receive Date: 20120711
  Receipt Date: 20130308
  Transmission Date: 20140127
  Serious: Yes (Other)
  Sender: FDA-Public Use
  Company Number: PHHY2012US058496

PATIENT
  Age: 64 Year
  Sex: Female

DRUGS (2)
  1. PREDNISONE [Suspect]
     Indication: TOXOPLASMOSIS
     Dosage: 60 MG, DAILY
     Route: 048
  2. BACTRIM [Concomitant]
     Indication: TOXOPLASMOSIS

REACTIONS (6)
  - Retinal vascular occlusion [Recovered/Resolved]
  - Necrotising retinitis [Unknown]
  - Blindness [Recovered/Resolved]
  - Visual acuity reduced [Recovered/Resolved]
  - Simplex virus test positive [Recovered/Resolved]
  - Vitreous haemorrhage [Recovered/Resolved]
